FAERS Safety Report 15252110 (Version 2)
Quarter: 2019Q1

REPORT INFORMATION
  Report Type: Report from Study
  Country: US (occurrence: US)
  Receive Date: 20180807
  Receipt Date: 20190208
  Transmission Date: 20190417
  Serious: No
  Sender: FDA-Public Use
  Company Number: PHEH2018US031901

PATIENT
  Age: 74 Year
  Sex: Male

DRUGS (2)
  1. COSENTYX [Suspect]
     Active Substance: SECUKINUMAB
     Dosage: UNK UNK, QMO
     Route: 065
     Dates: start: 201805
  2. COSENTYX [Suspect]
     Active Substance: SECUKINUMAB
     Indication: PSORIASIS
     Dosage: UNK
     Route: 065

REACTIONS (6)
  - Product storage error [Unknown]
  - Product prescribing error [Unknown]
  - Device malfunction [Unknown]
  - Drug effect decreased [Unknown]
  - Suspected product tampering [Unknown]
  - Psoriasis [Unknown]

NARRATIVE: CASE EVENT DATE: 201805
